FAERS Safety Report 9217516 (Version 1)
Quarter: 2013Q2

REPORT INFORMATION
  Report Type: Spontaneous
  Country: AU (occurrence: AU)
  Receive Date: 20130408
  Receipt Date: 20130408
  Transmission Date: 20140414
  Serious: Yes (Life-Threatening)
  Sender: FDA-Public Use
  Company Number: AU-ROCHE-1210440

PATIENT
  Age: 59 Year
  Sex: Female

DRUGS (1)
  1. MABTHERA [Suspect]
     Indication: RHEUMATOID ARTHRITIS
     Route: 065

REACTIONS (5)
  - Pyrexia [Recovered/Resolved]
  - Arthralgia [Recovered/Resolved]
  - Chest pain [Recovered/Resolved]
  - White blood cell count increased [Recovered/Resolved]
  - Circulatory collapse [Recovered/Resolved]
